FAERS Safety Report 7760985 (Version 2)
Quarter: 2014Q4

REPORT INFORMATION
  Report Type: Spontaneous
  Country: US (occurrence: US)
  Receive Date: 20110114
  Receipt Date: 20141114
  Transmission Date: 20150529
  Serious: Yes (Hospitalization, Other)
  Sender: FDA-Public Use
  Company Number: US-ROCHE-731098

PATIENT
  Age: 56 Year
  Sex: Male
  Weight: 75.3 kg

DRUGS (1)
  1. ACCUTANE [Suspect]
     Active Substance: ISOTRETINOIN
     Indication: ROSACEA
     Dosage: FROM 29 JUN 1999, FREQUENCY: 40 MG QD, FROM 06 AUG 1999, FREQUENCY: 40 MG BID
     Route: 065
     Dates: start: 19990629, end: 200001

REACTIONS (12)
  - Gastrointestinal injury [Unknown]
  - Tendonitis [Unknown]
  - Osteoarthritis [Unknown]
  - Inflammatory bowel disease [Unknown]
  - Enteritis [Unknown]
  - Gastrointestinal haemorrhage [Unknown]
  - Epistaxis [Unknown]
  - Blood triglycerides increased [Unknown]
  - Aphthous stomatitis [Unknown]
  - Basal cell carcinoma [Unknown]
  - Varicella virus test positive [Unknown]
  - Crohn^s disease [Unknown]

NARRATIVE: CASE EVENT DATE: 199907
